APPROVED DRUG PRODUCT: ACETAZOLAMIDE
Active Ingredient: ACETAZOLAMIDE
Strength: 500MG
Dosage Form/Route: CAPSULE, EXTENDED RELEASE;ORAL
Application: A204691 | Product #001 | TE Code: AB
Applicant: MPP PHARMA LLC
Approved: Mar 29, 2016 | RLD: No | RS: No | Type: RX